FAERS Safety Report 14909156 (Version 3)
Quarter: 2018Q2

REPORT INFORMATION
  Report Type: Spontaneous
  Country: US (occurrence: US)
  Receive Date: 20180517
  Receipt Date: 20180625
  Transmission Date: 20180711
  Serious: No
  Sender: FDA-Public Use
  Company Number: US-PFIZER INC-2018198548

PATIENT
  Age: 65 Year
  Sex: Female
  Weight: 129.27 kg

DRUGS (3)
  1. LETROZOLE. [Concomitant]
     Active Substance: LETROZOLE
     Dosage: 2.5 MG, DAILY
     Route: 048
     Dates: start: 2017
  2. IBRANCE [Suspect]
     Active Substance: PALBOCICLIB
     Dosage: 125 MG, CYCLIC, (DAILY ON 21 DAYS OFF 7 DAYS)
     Route: 048
     Dates: start: 2018
  3. IBRANCE [Suspect]
     Active Substance: PALBOCICLIB
     Indication: BREAST CANCER FEMALE
     Dosage: 125 MG, CYCLIC, (DAILY ON 21 DAYS OFF 7 DAYS)
     Route: 048
     Dates: start: 2018

REACTIONS (4)
  - Stomatitis [Recovered/Resolved]
  - Burning sensation [Recovered/Resolved]
  - Oral disorder [Recovered/Resolved]
  - Mouth ulceration [Recovered/Resolved]
